FAERS Safety Report 8297452-6 (Version None)
Quarter: 2012Q2

REPORT INFORMATION
  Report Type: 
  Country: None (occurrence: None)
  Receive Date: 20120419
  Receipt Date: 20120410
  Transmission Date: 20120825
  Serious: Yes (Other)
  Sender: FDA-Public Use
  Company Number: CA-JNJFOC-20120404361

PATIENT
  Sex: Female
  Weight: 109 kg

DRUGS (9)
  1. NOVO RAPID [Concomitant]
     Dosage: 54 UNITS
     Route: 065
     Dates: start: 20080101
  2. ATACAND HCT [Concomitant]
     Dosage: 32 MG/25 MG
     Route: 065
     Dates: start: 20100101
  3. HYDROCORTISONE [Concomitant]
     Route: 042
  4. BISOPROLOL FUMARATE [Concomitant]
     Route: 048
     Dates: start: 20010101
  5. REMICADE [Suspect]
     Indication: CROHN'S DISEASE
     Route: 042
     Dates: start: 20050101
  6. AMLODIPINE [Concomitant]
     Route: 065
     Dates: start: 20010101
  7. LEVEMIR [Concomitant]
     Dosage: 98 UNITS
     Route: 065
     Dates: start: 20080101
  8. CORTISONE ACETATE [Concomitant]
     Route: 065
     Dates: start: 20100101
  9. PANTOPRAZOLE [Concomitant]
     Route: 065
     Dates: start: 20010101

REACTIONS (1)
  - MUSCLE RUPTURE [None]
